FAERS Safety Report 4590349-4 (Version None)
Quarter: 2005Q1

REPORT INFORMATION
  Report Type: 
  Country: None (occurrence: None)
  Receive Date: 20050217
  Receipt Date: 20050118
  Transmission Date: 20050727
  Serious: Yes (Other)
  Sender: FDA-Public Use
  Company Number: 2004-11-1742

PATIENT
  Age: 77 Year
  Sex: Male
  Weight: 92.0802 kg

DRUGS (6)
  1. CLARITIN REDITABS [Suspect]
     Indication: SINUS DISORDER
     Dosage: 1 TABLET QD ORAL
     Route: 048
     Dates: start: 20041112, end: 20041122
  2. TERAZOSIN HCL [Concomitant]
  3. SIMVASTATIN [Concomitant]
  4. VITAMINS/MINERALS/DIETARY SUPPLEMENTS (NOS) [Concomitant]
  5. MEMANTINE [Concomitant]
  6. GALANTAMINE [Concomitant]

REACTIONS (2)
  - CONFUSIONAL STATE [None]
  - HALLUCINATION [None]
